FAERS Safety Report 11807503 (Version 3)
Quarter: 2015Q4

REPORT INFORMATION
  Report Type: Spontaneous
  Country: US (occurrence: US)
  Receive Date: 20151207
  Receipt Date: 20151224
  Transmission Date: 20160305
  Serious: Yes (Other)
  Sender: FDA-Public Use
  Company Number: US-RECKITT BENCKISER HEALTHCARE INT LIMITED-RB-09363-2015

PATIENT
  Age: 11 Year
  Sex: Male

DRUGS (1)
  1. CHILDRENS MUCINEX MULTI-SYMPTOM COLD AND FEVER [Suspect]
     Active Substance: ACETAMINOPHEN\DEXTROMETHORPHAN HYDROBROMIDE\GUAIFENESIN\PHENYLEPHRINE HYDROCHLORIDE
     Indication: PRODUCT USED FOR UNKNOWN INDICATION
     Dosage: 10 ML, SINGLE
     Route: 065
     Dates: start: 20151123

REACTIONS (7)
  - Heart rate irregular [Recovered/Resolved]
  - Left ventricular hypertrophy [Recovered/Resolved]
  - Palpitations [Recovered/Resolved]
  - Cardiac disorder [Recovered/Resolved]
  - Atrioventricular block second degree [Recovered/Resolved]
  - Extrasystoles [Recovered/Resolved]
  - Fatigue [Recovered/Resolved]

NARRATIVE: CASE EVENT DATE: 20151123
